FAERS Safety Report 16825565 (Version 2)
Quarter: 2019Q3

REPORT INFORMATION
  Report Type: Spontaneous
  Country: US (occurrence: US)
  Receive Date: 20190919
  Receipt Date: 20190924
  Transmission Date: 20191005
  Serious: No
  Sender: FDA-Public Use
  Company Number: US-BIOGEN-2019BI00786250

PATIENT
  Age: 42 Year
  Sex: Male

DRUGS (1)
  1. TECFIDERA [Suspect]
     Active Substance: DIMETHYL FUMARATE
     Indication: MULTIPLE SCLEROSIS
     Route: 048
     Dates: start: 20181113

REACTIONS (9)
  - Blood bilirubin increased [Not Recovered/Not Resolved]
  - Upper respiratory tract infection [Unknown]
  - Blood bilirubin decreased [Unknown]
  - Ear infection [Not Recovered/Not Resolved]
  - Lung infection [Not Recovered/Not Resolved]
  - Liver disorder [Unknown]
  - Sinusitis [Not Recovered/Not Resolved]
  - Pharyngitis [Unknown]
  - Hepatic enzyme increased [Not Recovered/Not Resolved]

NARRATIVE: CASE EVENT DATE: 20190830
